FAERS Safety Report 6975464-X (Version None)
Quarter: 2010Q3

REPORT INFORMATION
  Report Type: 
  Country: None (occurrence: None)
  Receive Date: 20100910
  Receipt Date: 20100908
  Transmission Date: 20110219
  Serious: Yes (Hospitalization)
  Sender: FDA-Public Use
  Company Number: IT-BRISTOL-MYERS SQUIBB COMPANY-15260169

PATIENT
  Age: 53 Year
  Sex: Male
  Weight: 63 kg

DRUGS (5)
  1. CETUXIMAB [Suspect]
     Indication: HEAD AND NECK CANCER
     Dosage: 5MG/ML; TEMPORARILY DISCONTINUED ON 16-AUG-2010 (DURATION: 26 DAYS)
     Route: 042
     Dates: start: 20100721
  2. CISPLATIN [Suspect]
     Indication: HEAD AND NECK CANCER
     Dosage: TEMPORARILY DISCONTINUED ON 16AUG10 (DURATION: 26 DAYS)
     Route: 042
     Dates: start: 20100721
  3. CILENGITIDE [Suspect]
     Indication: HEAD AND NECK CANCER
     Dosage: TEMPORARILY DISCONTINUED ON 16-AUG-2010 (DURATION: 26 DAYS)
     Route: 042
     Dates: start: 20100721
  4. FLUOROURACIL [Suspect]
     Indication: HEAD AND NECK CANCER
     Dosage: DAY 1 TO DAY 4 OF CYCLE; TEMPORARILY DISCONTINUED ON 16-AUG-2010 (DURATION: 26 DAYS)
     Route: 042
     Dates: start: 20100721
  5. CLONIDINE [Suspect]
     Indication: HYPERTENSION
     Dates: start: 20100720, end: 20100821

REACTIONS (1)
  - HYPOTENSION [None]
